FAERS Safety Report 9748702 (Version 2)
Quarter: 2013Q4

REPORT INFORMATION
  Report Type: Spontaneous
  Country: FR (occurrence: FR)
  Receive Date: 20131212
  Receipt Date: 20131227
  Transmission Date: 20140711
  Serious: Yes (Death, Life-Threatening)
  Sender: FDA-Public Use
  Company Number: FR-MERCK-1312FRA003146

PATIENT
  Age: 88 Year
  Sex: Male

DRUGS (9)
  1. AERIUS [Suspect]
     Dosage: 1 DF, QD
     Route: 048
     Dates: end: 20131020
  2. CORDARONE [Suspect]
     Dosage: 1 DF, 5 X PER WEEK
     Route: 048
     Dates: start: 201211, end: 20131024
  3. CARDENSIEL [Suspect]
     Dosage: 1 DF, QD
     Route: 048
     Dates: end: 20131024
  4. TAHOR [Suspect]
     Dosage: 80 MG, QD
     Route: 048
     Dates: start: 201211, end: 20131024
  5. AMLOR [Suspect]
     Dosage: 1 DF, QD
     Route: 048
     Dates: end: 20131024
  6. COUMADIN [Suspect]
     Dosage: UNK
     Route: 048
     Dates: end: 20131020
  7. PARIET [Suspect]
     Dosage: 1 DF, BID
     Route: 048
     Dates: end: 20131024
  8. UROREC [Suspect]
     Dosage: 1 DF, QD
     Route: 048
     Dates: end: 20131020
  9. AVODART [Concomitant]
     Dosage: UNK
     Route: 048

REACTIONS (1)
  - Interstitial lung disease [Fatal]
